FAERS Safety Report 8449182 (Version 2)
Quarter: 2013Q2

REPORT INFORMATION
  Report Type: Report from Study
  Country: MX (occurrence: MX)
  Receive Date: 20120308
  Receipt Date: 20130418
  Transmission Date: 20140414
  Serious: Yes (Death, Hospitalization, Other)
  Sender: FDA-Public Use
  Company Number: PHHY2012MX019319

PATIENT
  Age: 51 Year
  Sex: Male

DRUGS (1)
  1. DIOVAN [Suspect]
     Indication: PORTAL HYPERTENSION
     Dosage: 1 DF, DAILY (160 MG)
     Route: 048
     Dates: end: 20120229

REACTIONS (4)
  - Terminal state [Fatal]
  - Hepatic cancer [Fatal]
  - Haemorrhage [Recovered/Resolved]
  - Pain [Unknown]
